FAERS Safety Report 5610748-9 (Version None)
Quarter: 2008Q1

REPORT INFORMATION
  Report Type: 
  Country: None (occurrence: None)
  Receive Date: 20080201
  Receipt Date: 20080124
  Transmission Date: 20080703
  Serious: Yes (Hospitalization)
  Sender: FDA-Public Use
  Company Number: PHHY2008AR00965

PATIENT
  Age: 64 Year
  Sex: Female

DRUGS (3)
  1. DIOVAN HCT [Suspect]
     Indication: HYPERTENSION
     Dosage: 80 MG, QD
     Dates: start: 20040316, end: 20080121
  2. DIOVAN HCT [Suspect]
     Dosage: UNK, NO TREATMENT
     Dates: start: 20080122, end: 20080124
  3. DIOVAN HCT [Suspect]
     Dosage: 80 MG, QD
     Dates: start: 20080125

REACTIONS (3)
  - CARDIAC DISORDER [None]
  - INTESTINAL HAEMORRHAGE [None]
  - RESPIRATORY DISORDER [None]
